FAERS Safety Report 5243433-6 (Version None)
Quarter: 2007Q1

REPORT INFORMATION
  Report Type: 
  Country: None (occurrence: None)
  Receive Date: 20070214
  Receipt Date: 20070129
  Transmission Date: 20070707
  Serious: Yes (Other)
  Sender: FDA-Public Use
  Company Number: 100#01#2006-02823

PATIENT
  Age: 68 Year
  Sex: Male

DRUGS (1)
  1. AZITHROMYCIN [Suspect]
     Dosage: 500 MG
     Route: 042
     Dates: start: 20061012, end: 20061012

REACTIONS (8)
  - ASTHENIA [None]
  - HYPERHIDROSIS [None]
  - HYPOTENSION [None]
  - INFUSION RELATED REACTION [None]
  - METASTATIC BRONCHIAL CARCINOMA [None]
  - PALLOR [None]
  - PERIPHERAL COLDNESS [None]
  - TACHYCARDIA [None]
